FAERS Safety Report 21240669 (Version 1)
Quarter: 2022Q3

REPORT INFORMATION
  Report Type: Spontaneous
  Country: US (occurrence: None)
  Receive Date: 20220823
  Receipt Date: 20220823
  Transmission Date: 20221026
  Serious: No
  Sender: FDA-Public Use
  Company Number: 2022A280131

PATIENT
  Sex: Female
  Weight: 88.5 kg

DRUGS (2)
  1. BUDESONIDE\FORMOTEROL\GLYCOPYRRONIUM [Suspect]
     Active Substance: BUDESONIDE\FORMOTEROL\GLYCOPYRRONIUM
     Indication: Asthma
     Dosage: 160/9/4.8MCG
     Route: 055
     Dates: start: 202207
  2. ALBUTEROL [Suspect]
     Active Substance: ALBUTEROL
     Dosage: 90MCG ONCE AT NIGHT
     Route: 065

REACTIONS (5)
  - Hot flush [Unknown]
  - Diarrhoea [Unknown]
  - Hyperhidrosis [Unknown]
  - Insomnia [Unknown]
  - Cough [Unknown]
